FAERS Safety Report 7716078-3 (Version None)
Quarter: 2011Q3

REPORT INFORMATION
  Report Type: 
  Country: None (occurrence: None)
  Receive Date: 20110829
  Receipt Date: 20110422
  Transmission Date: 20111222
  Serious: Yes (Other)
  Sender: FDA-Public Use
  Company Number: US-GLAXOSMITHKLINE-A0924220A

PATIENT
  Age: 64 Year
  Sex: Male
  Weight: 82.7 kg

DRUGS (11)
  1. LASIX [Concomitant]
  2. PREDNISONE [Concomitant]
  3. LORTAB [Concomitant]
  4. ALLEGRA [Concomitant]
  5. SEREVENT [Concomitant]
  6. SPIRONOLACTONE [Concomitant]
  7. EXJADE [Concomitant]
  8. SINGULAIR [Concomitant]
  9. FLONASE [Concomitant]
  10. POTASSIUM [Concomitant]
  11. PROMACTA [Suspect]
     Indication: B-CELL LYMPHOMA
     Dosage: 50MG PER DAY
     Route: 048
     Dates: start: 20110316, end: 20110414

REACTIONS (3)
  - DYSPNOEA [None]
  - DRUG INEFFECTIVE [None]
  - BONE MARROW FAILURE [None]
